FAERS Safety Report 16024904 (Version 2)
Quarter: 2019Q2

REPORT INFORMATION
  Report Type: Spontaneous
  Country: US (occurrence: US)
  Receive Date: 20190301
  Receipt Date: 20190430
  Transmission Date: 20190711
  Serious: Yes (Other)
  Sender: FDA-Public Use
  Company Number: US-ASTRAZENECA-2018SF21233

PATIENT
  Age: 32 Year
  Sex: Male
  Weight: 74.8 kg

DRUGS (19)
  1. NEXIUM [Suspect]
     Active Substance: ESOMEPRAZOLE MAGNESIUM
     Indication: GASTROOESOPHAGEAL REFLUX DISEASE
     Route: 048
     Dates: start: 20010301, end: 20121231
  2. PRILOSEC [Suspect]
     Active Substance: OMEPRAZOLE MAGNESIUM
     Indication: IMPAIRED GASTRIC EMPTYING
     Route: 048
     Dates: start: 20000101, end: 20121231
  3. CLONIDINE. [Concomitant]
     Active Substance: CLONIDINE
  4. FERROUS SULFATE. [Concomitant]
     Active Substance: FERROUS SULFATE
  5. PREVACID [Suspect]
     Active Substance: LANSOPRAZOLE
     Indication: GASTROOESOPHAGEAL REFLUX DISEASE
     Route: 065
     Dates: start: 20000101, end: 20121231
  6. ATENOLOL. [Concomitant]
     Active Substance: ATENOLOL
  7. NEXIUM [Suspect]
     Active Substance: ESOMEPRAZOLE MAGNESIUM
     Indication: IMPAIRED GASTRIC EMPTYING
     Route: 048
     Dates: start: 20010301, end: 20121231
  8. NEXIUM [Suspect]
     Active Substance: ESOMEPRAZOLE MAGNESIUM
     Indication: GASTROOESOPHAGEAL REFLUX DISEASE
     Route: 048
     Dates: start: 20121128
  9. MINOXIDIL. [Concomitant]
     Active Substance: MINOXIDIL
  10. TRAMADOL. [Concomitant]
     Active Substance: TRAMADOL
  11. LANTUS SOLOSTAR [Concomitant]
     Active Substance: INSULIN GLARGINE
  12. PREVACID [Suspect]
     Active Substance: LANSOPRAZOLE
     Indication: IMPAIRED GASTRIC EMPTYING
     Route: 065
     Dates: start: 20000101, end: 20121231
  13. LASIX [Concomitant]
     Active Substance: FUROSEMIDE
  14. NORCO [Concomitant]
     Active Substance: ACETAMINOPHEN\HYDROCODONE BITARTRATE
  15. NOVOLOG [Concomitant]
     Active Substance: INSULIN ASPART
  16. NEXIUM [Suspect]
     Active Substance: ESOMEPRAZOLE MAGNESIUM
     Indication: IMPAIRED GASTRIC EMPTYING
     Route: 048
     Dates: start: 20121128
  17. PRILOSEC [Suspect]
     Active Substance: OMEPRAZOLE MAGNESIUM
     Indication: GASTROOESOPHAGEAL REFLUX DISEASE
     Route: 048
     Dates: start: 20000101, end: 20121231
  18. AMOXICILLIN. [Concomitant]
     Active Substance: AMOXICILLIN
  19. PRILOSEC OTC [Suspect]
     Active Substance: OMEPRAZOLE MAGNESIUM
     Route: 048
     Dates: start: 20030701, end: 20121231

REACTIONS (4)
  - Acute kidney injury [Not Recovered/Not Resolved]
  - Renal injury [Unknown]
  - End stage renal disease [Not Recovered/Not Resolved]
  - Chronic kidney disease [Unknown]

NARRATIVE: CASE EVENT DATE: 2012
